FAERS Safety Report 8906337 (Version 1)
Quarter: 2012Q4

REPORT INFORMATION
  Report Type: Spontaneous
  Country: DE (occurrence: None)
  Receive Date: 20121107
  Receipt Date: 20121107
  Transmission Date: 20130627
  Serious: Yes (Hospitalization)
  Sender: FDA-Public Use
  Company Number: 1471006

PATIENT
  Age: 67 Year
  Sex: Male

DRUGS (3)
  1. CALCIUM FOLINATE [Suspect]
     Indication: ADENOCARCINOMA OF COLON
     Dosage: 7 DF dosage form
  2. OXALIPLATIN [Suspect]
     Indication: ADENOCARCINOMA OF COLON
     Dosage: 7 DF dosage form
  3. FLUOROURACIL [Suspect]
     Indication: ADENOCARCINOMA OF COLON
     Dosage: 7 DF dosage form

REACTIONS (2)
  - Interstitial lung disease [None]
  - Dyspnoea exertional [None]
